FAERS Safety Report 6257422-6 (Version None)
Quarter: 2009Q3

REPORT INFORMATION
  Report Type: 
  Country: None (occurrence: None)
  Receive Date: 20090706
  Receipt Date: 20090625
  Transmission Date: 20100115
  Serious: Yes (Hospitalization, Other)
  Sender: FDA-Public Use
  Company Number: US-MERCK-0903USA00783

PATIENT
  Age: 57 Year
  Sex: Female

DRUGS (5)
  1. FOSAMAX [Suspect]
     Indication: OSTEOPOROSIS
     Route: 048
     Dates: start: 19990601
  2. FOSAMAX [Suspect]
     Route: 048
     Dates: start: 20011001, end: 20070118
  3. VITAMIN D (UNSPECIFIED) [Concomitant]
     Indication: OSTEOPOROSIS
     Route: 065
  4. CALCIUM (UNSPECIFIED) [Concomitant]
     Indication: OSTEOPOROSIS
     Route: 065
  5. PREMARIN [Concomitant]
     Indication: OSTEOPOROSIS
     Route: 065

REACTIONS (26)
  - ADVERSE DRUG REACTION [None]
  - APHTHOUS STOMATITIS [None]
  - DENTAL CARIES [None]
  - DRUG INEFFECTIVE [None]
  - DYSLIPIDAEMIA [None]
  - DYSPEPSIA [None]
  - EPICONDYLITIS [None]
  - FISTULA DISCHARGE [None]
  - GASTRIC MUCOSAL LESION [None]
  - GINGIVAL BLEEDING [None]
  - GINGIVAL DISORDER [None]
  - GLOSSITIS [None]
  - GLUCOSE TOLERANCE IMPAIRED [None]
  - HYPERTENSION [None]
  - IMPAIRED HEALING [None]
  - MIGRAINE [None]
  - MORTON'S NEUROMA [None]
  - MUSCULOSKELETAL PAIN [None]
  - ORAL INFECTION [None]
  - ORAL TORUS [None]
  - OSTEOARTHRITIS [None]
  - OSTEONECROSIS [None]
  - PALPITATIONS [None]
  - PERIODONTAL DISEASE [None]
  - SYNOVIAL CYST [None]
  - UTERINE DISORDER [None]
